FAERS Safety Report 5456411-9 (Version None)
Quarter: 2007Q3

REPORT INFORMATION
  Report Type: 
  Country: None (occurrence: None)
  Receive Date: 20070918
  Receipt Date: 20070904
  Transmission Date: 20080115
  Serious: Yes (Hospitalization)
  Sender: FDA-Public Use
  Company Number: ES-ELI_LILLY_AND_COMPANY-ES200709000504

PATIENT
  Age: 75 Year
  Sex: Female

DRUGS (5)
  1. HEPARINA [Concomitant]
  2. SOMAZINA [Concomitant]
  3. PRISDAL [Concomitant]
     Indication: DEPRESSION
  4. ANALGESIC                          /00735901/ [Concomitant]
  5. FORTEO [Suspect]
     Indication: OSTEOPOROSIS
     Dosage: 20 UG, DAILY (1/D)
     Route: 058
     Dates: start: 20070601

REACTIONS (2)
  - DEPRESSION [None]
  - FEMUR FRACTURE [None]
